FAERS Safety Report 9819119 (Version 2)
Quarter: 2013Q4

REPORT INFORMATION
  Report Type: Spontaneous
  Country: US (occurrence: None)
  Receive Date: 20131127
  Receipt Date: 20131127
  Transmission Date: 20140711
  Serious: Yes (Other)
  Sender: FDA-Public Use
  Company Number: 221408

PATIENT
  Age: 79 Year
  Sex: Female

DRUGS (10)
  1. PICATO GEL [Suspect]
     Indication: PHOTOSENSITIVITY REACTION
     Dates: start: 20130423, end: 20130423
  2. CARDIZEM(DILTIAZEM) [Concomitant]
  3. DIOVAN(VALSARTAN) [Concomitant]
  4. SINGULAIR(MONTELUKAST) [Concomitant]
  5. LYRICA(PREGABALIN [Concomitant]
  6. CALTRATE(CALCIUM CARBONATE) [Concomitant]
  7. VITAMIN D (ERGOCALCIFEROL) [Concomitant]
  8. CENTRUM(CENTRUM) [Concomitant]
  9. PRESSOR VISION (VITAMIN NOS) [Concomitant]
  10. WARFARIN(WARFARIN SODIUM) [Concomitant]

REACTIONS (5)
  - Application site erythema [None]
  - Application site pain [None]
  - Wrong technique in drug usage process [None]
  - Incorrect drug administration duration [None]
  - Application site swelling [None]
